FAERS Safety Report 5531884-1 (Version None)
Quarter: 2007Q4

REPORT INFORMATION
  Report Type: 
  Country: None (occurrence: None)
  Receive Date: 20071119
  Receipt Date: 20070808
  Transmission Date: 20080405
  Serious: No
  Sender: FDA-Public Use
  Company Number: TPA2007A01676

PATIENT
  Age: 59 Year
  Sex: Male
  Weight: 79.3795 kg

DRUGS (4)
  1. ROZEREM [Suspect]
     Indication: INSOMNIA
     Dosage: 8 MG, HS, PER ORAL
     Route: 048
     Dates: start: 20070208
  2. TOPROL-XL [Concomitant]
  3. ATIVAN [Concomitant]
  4. VYTORIN [Concomitant]

REACTIONS (3)
  - FEELING ABNORMAL [None]
  - HANGOVER [None]
  - MIDDLE INSOMNIA [None]
